FAERS Safety Report 9595958 (Version 2)
Quarter: 2015Q4

REPORT INFORMATION
  Report Type: Spontaneous
  Country: US (occurrence: US)
  Receive Date: 20131004
  Receipt Date: 20151007
  Transmission Date: 20160305
  Serious: No
  Sender: FDA-Public Use
  Company Number: US-009507513-1309USA013441

PATIENT
  Age: 8 Year
  Sex: Male

DRUGS (2)
  1. SINGULAIR [Suspect]
     Active Substance: MONTELUKAST SODIUM
     Indication: ANTIALLERGIC THERAPY
     Dosage: 10 MG, QD
     Route: 048
     Dates: start: 201212, end: 201302
  2. HYDROCORTISONE CREAM [Concomitant]
     Active Substance: HYDROCORTISONE

REACTIONS (22)
  - Nausea [Recovering/Resolving]
  - Toothache [Recovering/Resolving]
  - Eczema [Recovering/Resolving]
  - Sinus headache [Recovering/Resolving]
  - Headache [Recovering/Resolving]
  - Asthma [Recovering/Resolving]
  - Hernia [Recovering/Resolving]
  - Depression [Recovering/Resolving]
  - Diarrhoea [Recovering/Resolving]
  - Cough [Recovering/Resolving]
  - Rash [Recovering/Resolving]
  - Fatigue [Recovering/Resolving]
  - Oropharyngeal pain [Recovering/Resolving]
  - Scrotal swelling [Recovering/Resolving]
  - Nasal congestion [Recovering/Resolving]
  - Contusion [Recovering/Resolving]
  - Muscle twitching [Recovering/Resolving]
  - Sinus disorder [Recovering/Resolving]
  - Anxiety [Not Recovered/Not Resolved]
  - Stress [Recovering/Resolving]
  - Epistaxis [Recovering/Resolving]
  - Abdominal pain upper [Recovering/Resolving]

NARRATIVE: CASE EVENT DATE: 201212
